FAERS Safety Report 16997765 (Version 1)
Quarter: 2019Q4

REPORT INFORMATION
  Report Type: Spontaneous
  Country: US (occurrence: US)
  Receive Date: 20191106
  Receipt Date: 20191106
  Transmission Date: 20200122
  Serious: Yes (Other)
  Sender: FDA-Public Use
  Company Number: US-AMGEN-USASP2019183537

PATIENT
  Age: 54 Year
  Sex: Male

DRUGS (4)
  1. COSENTYX [Suspect]
     Active Substance: SECUKINUMAB
     Indication: PRODUCT USED FOR UNKNOWN INDICATION
     Dosage: UNK
     Route: 065
  2. ENBREL [Suspect]
     Active Substance: ETANERCEPT
     Indication: PRODUCT USED FOR UNKNOWN INDICATION
     Dosage: UNK
     Route: 065
  3. HUMIRA [Suspect]
     Active Substance: ADALIMUMAB
     Indication: PSORIATIC ARTHROPATHY
     Dosage: UNK
     Route: 065
  4. HUMIRA [Suspect]
     Active Substance: ADALIMUMAB
     Indication: PSORIASIS
     Dosage: UNK
     Route: 058
     Dates: start: 2016, end: 2016

REACTIONS (12)
  - Knee arthroplasty [Recovered/Resolved]
  - Drug ineffective [Not Recovered/Not Resolved]
  - Surgical failure [Not Recovered/Not Resolved]
  - Injection site pain [Unknown]
  - Spinal fusion surgery [Not Recovered/Not Resolved]
  - Skin haemorrhage [Not Recovered/Not Resolved]
  - Amnesia [Unknown]
  - Hypoaesthesia [Not Recovered/Not Resolved]
  - Gun shot wound [Recovered/Resolved]
  - Psoriasis [Not Recovered/Not Resolved]
  - Seizure [Recovered/Resolved]
  - Fall [Recovered/Resolved]

NARRATIVE: CASE EVENT DATE: 2016
